FAERS Safety Report 5585856-1 (Version None)
Quarter: 2008Q1

REPORT INFORMATION
  Report Type: 
  Country: None (occurrence: None)
  Receive Date: 20080109
  Receipt Date: 20071105
  Transmission Date: 20080703
  Serious: Yes (Other)
  Sender: FDA-Public Use
  Company Number: GB-RANBAXY-2007RR-11291

PATIENT

DRUGS (6)
  1. LISINOPRIL [Suspect]
     Indication: HYPERTENSION
     Dosage: 5 MG, QD
     Route: 048
     Dates: start: 20051203, end: 20051204
  2. ALLOPURINOL TABLETS BP 300MG [Concomitant]
     Indication: GOUT
     Dosage: 300 MG, QD
     Route: 048
     Dates: start: 20030701, end: 20051201
  3. BECLOMETHASONE DIPROPIONATE [Concomitant]
     Indication: ASTHMA
     Dosage: 250 UG, UNK
     Route: 055
     Dates: start: 20030217, end: 20050318
  4. DILTIAZEM HYDROCHLORIDE [Concomitant]
     Indication: ANGINA PECTORIS
     Dosage: 120 MG, PRN
     Route: 048
     Dates: start: 19990108, end: 20050126
  5. DOXAZOSIN 4MG TABLETS [Concomitant]
     Indication: HYPERTENSION
     Dosage: 4 MG, QD
     Route: 048
     Dates: start: 20050907, end: 20051201
  6. SALBUTAMOL TABLETS BP 2MG [Concomitant]
     Indication: ASTHMA
     Dosage: 100 UG, QID
     Route: 055
     Dates: start: 20040831, end: 20050217

REACTIONS (4)
  - BLISTER [None]
  - FACE OEDEMA [None]
  - OEDEMA PERIPHERAL [None]
  - RASH GENERALISED [None]
